FAERS Safety Report 9758802 (Version 1)
Quarter: 2013Q4

REPORT INFORMATION
  Report Type: Spontaneous
  Country: US (occurrence: None)
  Receive Date: 20131216
  Receipt Date: 20131216
  Transmission Date: 20140711
  Serious: Yes (Other)
  Sender: FDA-Public Use
  Company Number: 063713

PATIENT
  Sex: Male

DRUGS (1)
  1. CIMZIA [Suspect]
     Indication: CROHN^S DISEASE
     Dosage: (400 MG 1X/4 WEEKS 400 MG MAINTENANCE DOSE, 200 MG GIVEN IN LEFT AND RIGHT THIGH SUBCUTANEOUS)

REACTIONS (8)
  - Weight decreased [None]
  - Depression [None]
  - Insomnia [None]
  - Dehydration [None]
  - Abdominal pain [None]
  - Fatigue [None]
  - Injection site mass [None]
  - Frequent bowel movements [None]
